FAERS Safety Report 23494876 (Version 2)
Quarter: 2024Q2

REPORT INFORMATION
  Report Type: Spontaneous
  Country: FR (occurrence: None)
  Receive Date: 20240207
  Receipt Date: 20240422
  Transmission Date: 20240716
  Serious: Yes (Hospitalization, Other)
  Sender: FDA-Public Use
  Company Number: 2024A030085

PATIENT
  Age: 1 Month
  Sex: Female
  Weight: 4.1 kg

DRUGS (1)
  1. BEYFORTUS [Suspect]
     Active Substance: NIRSEVIMAB-ALIP
     Indication: Respiratory syncytial virus immunisation
     Dosage: 0.5 ML, TOTAL0.5ML ONCE/SINGLE ADMINISTRATION
     Route: 030
     Dates: start: 20231005, end: 20231005

REACTIONS (4)
  - Respiratory syncytial virus bronchiolitis [Recovered/Resolved]
  - Drug ineffective [Unknown]
  - Pneumonia respiratory syncytial viral [Recovered/Resolved]
  - Incorrect route of product administration [Unknown]

NARRATIVE: CASE EVENT DATE: 20231005
